FAERS Safety Report 6913364 (Version 1)
Quarter: 2020Q3

REPORT INFORMATION
  Report Type: Report from Study
  Country: DE (occurrence: DE)
  Receive Date: 20090219
  Receipt Date: 20090219
  Transmission Date: 20201104
  Serious: Yes (Other)
  Sender: FDA-Public Use
  Company Number: DE-ROCHE-504105

PATIENT
  Age: 79 Year
  Sex: Female
  Weight: 75 kg

DRUGS (2)
  1. IBANDRONIC ACID. [Suspect]
     Active Substance: IBANDRONIC ACID
     Indication: BREAST CANCER
     Dosage: DOSAGE FORM REPORTED AS INFUSION.
     Route: 042
     Dates: start: 20070426, end: 20070621
  2. CAPECITABINE. [Suspect]
     Active Substance: CAPECITABINE
     Indication: BREAST CANCER
     Dosage: AS PER PROTOCOL GIVEN ON TWO DAILY DOSES ON DAY ONE TO FOURTEEN EVERY TWENTY?TWO DAYS.
     Route: 048
     Dates: start: 20070427, end: 20070620

REACTIONS (3)
  - Dyspnoea [Unknown]
  - Blood bilirubin increased [Unknown]
  - Palmar-plantar erythrodysaesthesia syndrome [Recovered/Resolved]

NARRATIVE: CASE EVENT DATE: 20070621
